FAERS Safety Report 7921214-X (Version None)
Quarter: 2011Q4

REPORT INFORMATION
  Report Type: 
  Country: None (occurrence: None)
  Receive Date: 20111117
  Receipt Date: 20111109
  Transmission Date: 20120403
  Serious: Yes (Hospitalization)
  Sender: FDA-Public Use
  Company Number: US-JNJFOC-20111107032

PATIENT
  Sex: Male
  Weight: 49.3 kg

DRUGS (22)
  1. ANTIBIOTICS FOR IBD [Suspect]
     Indication: ANAL FISTULA
     Dates: end: 20110101
  2. PROBIOTICS [Concomitant]
  3. BENZACLIN [Concomitant]
  4. METRONIDAZOLE [Suspect]
     Indication: ANAL FISTULA
     Dates: end: 20110101
  5. CALCIUM W/MINERALS/VITAMIN D NOS [Concomitant]
  6. CHOLECALCIFEROL [Concomitant]
  7. FOLIC ACID [Concomitant]
  8. IBUPROFEN [Concomitant]
  9. METHOTREXATE [Concomitant]
     Indication: CROHN'S DISEASE
  10. ACETAMINOPHEN [Concomitant]
  11. BENZOYL PEROXIDE [Concomitant]
  12. DAPSONE [Concomitant]
  13. GABAPENTIN [Concomitant]
  14. MULTIVITAMIN WITH MINERALS [Concomitant]
  15. HUMIRA [Concomitant]
     Indication: CROHN'S DISEASE
  16. ADAPALENE [Concomitant]
  17. ASCORBIC ACID [Concomitant]
  18. OMEPRAZOLE [Concomitant]
  19. GROWTH HORMONE [Concomitant]
  20. LETROZOLE [Concomitant]
  21. INFLIXIMAB [Suspect]
     Indication: INFLAMMATORY BOWEL DISEASE
     Route: 042
     Dates: start: 20090706, end: 20090817
  22. LEVOTHYROXINE SODIUM [Concomitant]

REACTIONS (8)
  - NEUROTOXICITY [None]
  - DIZZINESS [None]
  - DYSARTHRIA [None]
  - CSF PROTEIN INCREASED [None]
  - UNEVALUABLE EVENT [None]
  - MUSCULAR WEAKNESS [None]
  - ANAL FISTULA [None]
  - FALL [None]
